FAERS Safety Report 5773897-0 (Version None)
Quarter: 2008Q2

REPORT INFORMATION
  Report Type: 
  Country: None (occurrence: None)
  Receive Date: 20080616
  Receipt Date: 20080604
  Transmission Date: 20081010
  Serious: Yes (Other)
  Sender: FDA-Public Use
  Company Number: B0361595A

PATIENT
  Age: 42 Year
  Sex: Female

DRUGS (5)
  1. PAROXETINE HCL [Suspect]
     Dosage: 20MG PER DAY
     Route: 065
     Dates: start: 19960902
  2. PAROXETINE HCL [Suspect]
     Route: 065
     Dates: start: 20041018
  3. ESTRADERM [Concomitant]
     Dosage: 50MCG UNKNOWN
     Route: 065
  4. HALOPERIDOL [Concomitant]
  5. LEVOTHYROXINE SODIUM [Concomitant]

REACTIONS (14)
  - ANGER [None]
  - ANXIETY [None]
  - DISSOCIATION [None]
  - DISTURBANCE IN ATTENTION [None]
  - DIZZINESS [None]
  - DRUG WITHDRAWAL SYNDROME [None]
  - EMOTIONAL DISORDER [None]
  - HEADACHE [None]
  - LETHARGY [None]
  - MEMORY IMPAIRMENT [None]
  - MIGRAINE [None]
  - MOOD ALTERED [None]
  - NAUSEA [None]
  - SUICIDAL IDEATION [None]
